FAERS Safety Report 9536420 (Version 1)
Quarter: 2013Q3

REPORT INFORMATION
  Report Type: Spontaneous
  Country: IT (occurrence: IT)
  Receive Date: 20130919
  Receipt Date: 20130919
  Transmission Date: 20140515
  Serious: Yes (Hospitalization)
  Sender: FDA-Public Use
  Company Number: IT-SANOFI-AVENTIS-2013SA091055

PATIENT
  Age: 78 Year
  Sex: Male

DRUGS (4)
  1. LANTUS SOLOSTAR [Suspect]
     Indication: DIABETES MELLITUS
     Route: 058
     Dates: start: 20090101, end: 20130708
  2. HUMALOG [Suspect]
     Indication: DIABETES MELLITUS
     Dosage: STRENGTH: 100 U/ML
     Route: 058
     Dates: start: 20090101, end: 20130708
  3. SOLOSTAR [Concomitant]
     Indication: DEVICE THERAPY
     Dates: start: 20090101, end: 20130708
  4. COUMADIN [Concomitant]

REACTIONS (3)
  - Head injury [Recovered/Resolved]
  - Presyncope [Recovered/Resolved]
  - Hypoglycaemia [Recovered/Resolved]
